FAERS Safety Report 9969779 (Version 2)
Quarter: 2014Q1

REPORT INFORMATION
  Report Type: Report from Study
  Country: JP (occurrence: JP)
  Receive Date: 20140306
  Receipt Date: 20140306
  Transmission Date: 20141002
  Serious: Yes (Hospitalization)
  Sender: FDA-Public Use
  Company Number: JP-JNJFOC-20140217604

PATIENT
  Age: 93 Year
  Sex: Female

DRUGS (3)
  1. FINIBAX [Suspect]
     Indication: PNEUMONIA
     Route: 041
     Dates: start: 20140110, end: 20140110
  2. FINIBAX [Suspect]
     Indication: PNEUMONIA
     Route: 041
     Dates: start: 20140108, end: 20140109
  3. LASIX [Concomitant]
     Indication: PRODUCT USED FOR UNKNOWN INDICATION
     Dosage: 20MG/DAY
     Route: 065
     Dates: start: 20140109, end: 20140110

REACTIONS (3)
  - Sepsis [Unknown]
  - Liver disorder [Unknown]
  - Diarrhoea [Not Recovered/Not Resolved]
